FAERS Safety Report 6026122-X (Version None)
Quarter: 2009Q1

REPORT INFORMATION
  Report Type: 
  Country: None (occurrence: None)
  Receive Date: 20090102
  Receipt Date: 20081222
  Transmission Date: 20090719
  Serious: Yes (Hospitalization)
  Sender: FDA-Public Use
  Company Number: US-ROCHE-483958

PATIENT
  Age: 70 Year
  Sex: Male

DRUGS (16)
  1. FUZEON [Suspect]
     Route: 065
     Dates: start: 20040101
  2. KALETRA [Concomitant]
  3. ZIAGEN [Concomitant]
  4. VIDEX [Concomitant]
  5. FLOMAX [Concomitant]
  6. VESICARE [Concomitant]
  7. LEXAPRO [Concomitant]
  8. PRAVACHOL [Concomitant]
  9. SOMA [Concomitant]
  10. VICOPROFEN [Concomitant]
  11. CALCIUM SUPPLEMENT [Concomitant]
  12. MULTI-VITAMIN [Concomitant]
  13. CRANBERRY [Concomitant]
  14. 1 CONCOMITANT DRUG [Concomitant]
     Dosage: DRUG NAME REPORTED: DIGANISON
  15. HYALURONIC ACID [Concomitant]
  16. LYRICA [Concomitant]

REACTIONS (8)
  - ARTHROPATHY [None]
  - COLORECTAL CANCER [None]
  - GASTROENTERITIS RADIATION [None]
  - INJECTION SITE RASH [None]
  - INJECTION SITE REACTION [None]
  - INTESTINAL OBSTRUCTION [None]
  - NEUROPATHY PERIPHERAL [None]
  - SHORT-BOWEL SYNDROME [None]
